FAERS Safety Report 9514022 (Version 1)
Quarter: 2013Q1

REPORT INFORMATION
  Report Type: Spontaneous
  Country: US (occurrence: None)
  Receive Date: 20130305
  Receipt Date: 20130305
  Transmission Date: 20140127
  Serious: Yes (Other)
  Sender: FDA-Public Use
  Company Number: 163-21880-12010048

PATIENT
  Age: 88 Year
  Sex: Female
  Weight: 40.91 kg

DRUGS (5)
  1. REVLIMID [Suspect]
     Indication: MYELODYSPLASTIC SYNDROME
     Dosage: DAILY X 21 DAYS
     Route: 048
     Dates: start: 201105, end: 20111212
  2. ECHINACEA (ECHINACEA COMPLEX) [Concomitant]
  3. SYNTHROID (LEVOTHYROXINE SODIUM) [Concomitant]
  4. PROPRANOLOL (PROPRANOLOL) [Concomitant]
  5. VITAMIN B12 (CYANOCOBALAMIN) [Concomitant]

REACTIONS (1)
  - Neutropenia [None]
